FAERS Safety Report 17406477 (Version 1)
Quarter: 2020Q1

REPORT INFORMATION
  Report Type: Spontaneous
  Country: US (occurrence: US)
  Receive Date: 20200212
  Receipt Date: 20200212
  Transmission Date: 20200409
  Serious: No
  Sender: FDA-Public Use
  Company Number: US-ALLERGAN-1923246US

PATIENT
  Age: 63 Year
  Sex: Female

DRUGS (4)
  1. VIIBRYD [Suspect]
     Active Substance: VILAZODONE HYDROCHLORIDE
     Indication: DEPRESSION
     Dosage: 20 MG, QD
     Route: 048
     Dates: start: 20160603, end: 20190605
  2. VIIBRYD [Suspect]
     Active Substance: VILAZODONE HYDROCHLORIDE
     Indication: ANXIETY
     Dosage: 30 MG, QD
     Route: 048
     Dates: start: 2017
  3. UNSPECIFIED VITAMINS [Concomitant]
     Active Substance: VITAMINS
  4. UNSPECIFIED REDUCING VITAMIN B6 MEDICATION [Concomitant]

REACTIONS (4)
  - Product use in unapproved indication [Unknown]
  - Vitamin B6 [Not Recovered/Not Resolved]
  - Paraesthesia [Recovering/Resolving]
  - Hot flush [Unknown]

NARRATIVE: CASE EVENT DATE: 201904
